FAERS Safety Report 14414349 (Version 3)
Quarter: 2018Q1

REPORT INFORMATION
  Report Type: Spontaneous
  Country: DE (occurrence: DE)
  Receive Date: 20180120
  Receipt Date: 20180327
  Transmission Date: 20180509
  Serious: Yes (Hospitalization, Other)
  Sender: FDA-Public Use
  Company Number: DE-SUN PHARMACEUTICAL INDUSTRIES LTD-2018R1-160389

PATIENT
  Age: 35 Year
  Sex: Female

DRUGS (17)
  1. SERTRALINE [Suspect]
     Active Substance: SERTRALINE HYDROCHLORIDE
     Dosage: 100 MG, QD
     Route: 048
     Dates: start: 20170720
  2. PREGABALIN. [Suspect]
     Active Substance: PREGABALIN
     Dosage: 300 MG, QD
     Route: 048
     Dates: start: 20170725, end: 20170730
  3. PREGABALIN. [Suspect]
     Active Substance: PREGABALIN
     Dosage: 600 MG, QD
     Route: 048
     Dates: start: 20170712, end: 20170719
  4. PREGABALIN. [Suspect]
     Active Substance: PREGABALIN
     Dosage: 150 MG, QD
     Route: 048
     Dates: start: 20170731, end: 20170803
  5. CIATYL [Suspect]
     Active Substance: CLOPENTHIXOL HYDROCHLORIDE
     Dosage: 10 MG, QD
     Route: 048
     Dates: start: 20170726
  6. SERTRALINE [Suspect]
     Active Substance: SERTRALINE HYDROCHLORIDE
     Indication: PRODUCT USED FOR UNKNOWN INDICATION
     Dosage: 50 MG, QD
     Route: 048
     Dates: start: 20170712, end: 20170719
  7. PREGABALIN. [Suspect]
     Active Substance: PREGABALIN
     Indication: PRODUCT USED FOR UNKNOWN INDICATION
     Dosage: 1500 MG, QD
     Route: 048
     Dates: start: 20170101, end: 20170711
  8. PREGABALIN. [Suspect]
     Active Substance: PREGABALIN
     Dosage: 450 MG, QD
     Route: 048
     Dates: start: 20170720, end: 20170724
  9. CIATYL [Suspect]
     Active Substance: CLOPENTHIXOL HYDROCHLORIDE
     Indication: PRODUCT USED FOR UNKNOWN INDICATION
     Dosage: 20 MG, QD
     Route: 048
     Dates: start: 20170725
  10. PROTHIPENDYL [Suspect]
     Active Substance: PROTHIPENDYL
     Dosage: 120 MG, QD
     Route: 048
     Dates: start: 20170722, end: 20170722
  11. PROTHIPENDYL [Suspect]
     Active Substance: PROTHIPENDYL
     Dosage: 160 MG, QD
     Route: 048
     Dates: start: 20170723, end: 20170723
  12. CIATYL-Z [Suspect]
     Active Substance: ZUCLOPENTHIXOL
     Indication: PRODUCT USED FOR UNKNOWN INDICATION
     Dosage: 10 MG, QD
     Route: 048
     Dates: start: 20170726, end: 20170726
  13. GENVOYA [Concomitant]
     Active Substance: COBICISTAT\ELVITEGRAVIR\EMTRICITABINE\TENOFOVIR ALAFENAMIDE FUMARATE
     Indication: VEIN DISORDER
     Dosage: 150/150/200/10 MG ()
     Route: 048
     Dates: start: 20170101
  14. SUBUTEX [Concomitant]
     Active Substance: BUPRENORPHINE HYDROCHLORIDE
     Indication: ANALGESIC THERAPY
     Dosage: 14 MG, DAILY
     Route: 048
     Dates: start: 20170101
  15. PROTHIPENDYL [Suspect]
     Active Substance: PROTHIPENDYL
     Dosage: 120 MG, QD
     Route: 048
     Dates: start: 20170724
  16. CIATYL-Z [Suspect]
     Active Substance: ZUCLOPENTHIXOL
     Dosage: 20 MG, QD
     Route: 048
     Dates: start: 20170725, end: 20170725
  17. PROTHIPENDYL [Suspect]
     Active Substance: PROTHIPENDYL
     Indication: PRODUCT USED FOR UNKNOWN INDICATION
     Dosage: 160 MG, QD
     Route: 048
     Dates: start: 20170717, end: 20170721

REACTIONS (1)
  - Dyskinesia [Recovered/Resolved]

NARRATIVE: CASE EVENT DATE: 20170726
